FAERS Safety Report 24685793 (Version 1)
Quarter: 2024Q4

REPORT INFORMATION
  Report Type: Spontaneous
  Country: US (occurrence: None)
  Receive Date: 20241128
  Receipt Date: 20241128
  Transmission Date: 20250115
  Serious: Yes (Other)
  Sender: Public
  Company Number: None

PATIENT
  Sex: Female

DRUGS (10)
  1. ZELBORAF [Suspect]
     Active Substance: VEMURAFENIB
     Indication: Metastases to central nervous system
     Route: 048
     Dates: start: 20241010
  2. COTELLIC [Suspect]
     Active Substance: COBIMETINIB
  3. ALPRAZOLAM [Concomitant]
     Active Substance: ALPRAZOLAM
  4. AMLODIPINE [Concomitant]
     Active Substance: AMLODIPINE BESYLATE
  5. BRAFTOVI [Concomitant]
     Active Substance: ENCORAFENIB
  6. COTELLIC [Concomitant]
     Active Substance: COBIMETINIB
  7. DEXAMETHASONE [Concomitant]
     Active Substance: DEXAMETHASONE
  8. ATROPINE SULFATE\DIPHENOXYLATE [Concomitant]
     Active Substance: ATROPINE SULFATE\DIPHENOXYLATE
  9. GABAPENTIN [Concomitant]
     Active Substance: GABAPENTIN
  10. A-HYDROCORT [Concomitant]
     Active Substance: HYDROCORTISONE SODIUM SUCCINATE

REACTIONS (2)
  - Surgery [None]
  - Therapy interrupted [None]
